FAERS Safety Report 8177817-3 (Version None)
Quarter: 2012Q1

REPORT INFORMATION
  Report Type: 
  Country: None (occurrence: None)
  Receive Date: 20120301
  Receipt Date: 20120221
  Transmission Date: 20120608
  Serious: Yes (Hospitalization)
  Sender: FDA-Public Use
  Company Number: CH-ROCHE-1043011

PATIENT
  Age: 66 Year
  Sex: Male

DRUGS (6)
  1. AVASTIN [Suspect]
     Indication: LUNG ADENOCARCINOMA METASTATIC
     Route: 042
     Dates: start: 20120102
  2. PRAVASTATIN [Concomitant]
     Route: 048
  3. CISPLATIN [Suspect]
     Indication: LUNG ADENOCARCINOMA METASTATIC
     Route: 042
     Dates: start: 20120102
  4. AMLODIPINE [Concomitant]
     Route: 048
  5. PEMETREXED DISODIUM [Suspect]
     Indication: LUNG ADENOCARCINOMA METASTATIC
     Route: 042
     Dates: start: 20120102
  6. CANDESARTAN CILEXETIL [Concomitant]
     Route: 048

REACTIONS (3)
  - FATIGUE [None]
  - DEHYDRATION [None]
  - BLOOD CREATININE INCREASED [None]
